FAERS Safety Report 4654580-1 (Version None)
Quarter: 2005Q2

REPORT INFORMATION
  Report Type: 
  Country: None (occurrence: None)
  Receive Date: 20050404
  Receipt Date: 20041206
  Transmission Date: 20051028
  Serious: No
  Sender: FDA-Public Use
  Company Number: USA041285349

PATIENT
  Age: 41 Year
  Sex: Female
  Weight: 81 kg

DRUGS (6)
  1. CYMBALTA (DULOEXTINE HYDROCHLORIDE) [Suspect]
     Indication: PAIN
     Dosage: 60 MG DAY
     Dates: start: 20041101
  2. AVINZA [Concomitant]
  3. NEXIUM [Concomitant]
  4. OXYCONTIN [Concomitant]
  5. BONTRIL [Concomitant]
  6. CELEXA [Concomitant]

REACTIONS (3)
  - DIFFICULTY IN WALKING [None]
  - IRRITABILITY [None]
  - OEDEMA PERIPHERAL [None]
